FAERS Safety Report 19712065 (Version 4)
Quarter: 2021Q3

REPORT INFORMATION
  Report Type: Report from Study
  Country: EG (occurrence: EG)
  Receive Date: 20210817
  Receipt Date: 20210918
  Transmission Date: 20211014
  Serious: Yes (Other)
  Sender: FDA-Public Use
  Company Number: NVSC2021EG185082

PATIENT
  Age: 46 Year
  Sex: Female

DRUGS (4)
  1. COSENTYX [Suspect]
     Active Substance: SECUKINUMAB
     Dosage: 150 MG, QMO (THEN 2PENS PER MONTH AS A MAINTENANCE DOSE)
     Route: 058
     Dates: start: 202007, end: 202012
  2. COSENTYX [Suspect]
     Active Substance: SECUKINUMAB
     Dosage: UNK UNK, UNKNOWN
     Route: 058
     Dates: start: 202108
  3. COSENTYX [Suspect]
     Active Substance: SECUKINUMAB
     Indication: LICHEN PLANUS
     Dosage: 150 MG, QW (2PENS EVERY WEEK FOR 6 WEEKS AS A LOADING DOSE)
     Route: 058
     Dates: start: 201907, end: 202004
  4. SOLUPRED [Concomitant]
     Indication: PRODUCT USED FOR UNKNOWN INDICATION
     Dosage: 5 MG, UNKNOWN
     Route: 065

REACTIONS (9)
  - Pain [Recovered/Resolved]
  - Pain [Recovering/Resolving]
  - Movement disorder [Recovering/Resolving]
  - Coronavirus infection [Recovered/Resolved]
  - Ulcer [Recovering/Resolving]
  - Skin erosion [Recovering/Resolving]
  - Dermatitis [Recovering/Resolving]
  - Product use in unapproved indication [Recovered/Resolved]
  - Drug ineffective [Not Recovered/Not Resolved]

NARRATIVE: CASE EVENT DATE: 201910
